FAERS Safety Report 9559890 (Version 1)
Quarter: 2013Q3

REPORT INFORMATION
  Report Type: Spontaneous
  Country: IN (occurrence: None)
  Receive Date: 20130925
  Receipt Date: 20130925
  Transmission Date: 20140515
  Serious: Yes (Hospitalization)
  Sender: FDA-Public Use
  Company Number: CMB-00139

PATIENT
  Age: 64 Year
  Sex: Male

DRUGS (1)
  1. DICLOFENAC SODIUM [Suspect]
     Dosage: 50 MG, ONCE, INTAMUSCULAR IN GLUTEAL REGION
     Route: 030

REACTIONS (2)
  - Kounis syndrome [None]
  - Anaphylactic reaction [None]
